FAERS Safety Report 10716909 (Version 1)
Quarter: 2015Q1

REPORT INFORMATION
  Report Type: Spontaneous
  Country: JP (occurrence: JP)
  Receive Date: 20150116
  Receipt Date: 20150116
  Transmission Date: 20150721
  Serious: Yes (Other)
  Sender: FDA-Public Use
  Company Number: JP-MERCK-1412JPN006949

PATIENT
  Age: 38 Year
  Sex: Female

DRUGS (16)
  1. KLARICID [Concomitant]
     Active Substance: CLARITHROMYCIN
     Indication: ASTHMA
     Dosage: 200 MG, BID
     Route: 048
     Dates: start: 20140730, end: 20140805
  2. CARBOCYSTEINE [Concomitant]
     Active Substance: CARBOCYSTEINE
     Indication: ASTHMA
     Dosage: 500 MG, TID
     Route: 048
     Dates: start: 20140730, end: 20140902
  3. WAPLON P [Concomitant]
     Indication: STOMATITIS
     Dosage: DIVED DOSES, UNK
     Route: 062
     Dates: start: 20140806
  4. SYMBICORT [Concomitant]
     Active Substance: BUDESONIDE\FORMOTEROL FUMARATE DIHYDRATE
     Indication: ASTHMA
     Dosage: 2 PUFFS PER DOSE, TWICE DAILY, FORMULATION: INHALER
     Route: 055
     Dates: start: 20140730
  5. NEOPHYLLIN (AMINOPHYLLINE) [Concomitant]
     Indication: ASTHMA
     Dosage: 250 MG, QD
     Route: 041
     Dates: start: 20140727, end: 20140728
  6. CASAL [Concomitant]
     Active Substance: VIDARABINE
     Indication: HERPES VIRUS INFECTION
     Dosage: BID, DOSE UNKNOWN
     Route: 061
     Dates: start: 20140806
  7. REMERON [Suspect]
     Active Substance: MIRTAZAPINE
     Indication: PSYCHIATRIC SYMPTOM
     Dosage: 30 MG, BEFORE SLEEP
     Route: 048
     Dates: end: 20141215
  8. DEQUALINIUM CHLORIDE [Concomitant]
     Active Substance: DEQUALINIUM CHLORIDE
     Indication: NASOPHARYNGITIS
     Dosage: 1 SWEET TABLET ON SORE THROAT, FREQUENCY UNKNOWN
     Route: 048
     Dates: start: 20140727
  9. FLAVITAN [Concomitant]
     Active Substance: FLAVIN ADENINE DINUCLEOTIDE
     Indication: STOMATITIS
     Dosage: 5 MG, BID
     Route: 048
     Dates: start: 20140820, end: 20141118
  10. BISOLVON [Concomitant]
     Active Substance: BROMHEXINE HYDROCHLORIDE
     Indication: ASTHMA
     Dosage: 2 ML, TID
     Route: 055
     Dates: start: 20140730, end: 20141118
  11. PREDONINE [Concomitant]
     Active Substance: PREDNISOLONE\PREDNISOLONE ACETATE\PREDNISOLONE SODIUM SUCCINATE
     Indication: ASTHMA
     Dosage: 10 MG, BID
     Route: 048
     Dates: start: 20140731, end: 20140804
  12. MEPTIN [Concomitant]
     Active Substance: PROCATEROL HYDROCHLORIDE
     Indication: ASTHMA
     Dosage: AT ATTACKS, 2 PUFFS PER DOSE
     Route: 055
     Dates: start: 20140727
  13. BAKUMONDO-TO [Concomitant]
     Active Substance: HERBALS
     Indication: NASOPHARYNGITIS
     Dosage: PERORAL PREPARATION, 3 G, TID
     Route: 048
     Dates: start: 20140727, end: 20140731
  14. METHYLPREDNISOLONE SODIUM SUCCINATE. [Concomitant]
     Active Substance: METHYLPREDNISOLONE SODIUM SUCCINATE
     Indication: ASTHMA
     Dosage: 80 MG, QD
     Route: 041
     Dates: start: 20140730, end: 20140730
  15. APHTASOLON [Concomitant]
     Indication: STOMATITIS
     Dosage: UNK
     Route: 061
     Dates: start: 20141010
  16. CALONAL [Concomitant]
     Active Substance: ACETAMINOPHEN
     Indication: TOOTHACHE
     Dosage: 400 MG, TID
     Route: 048
     Dates: start: 20141010, end: 20141013

REACTIONS (2)
  - Caesarean section [Unknown]
  - Maternal exposure during pregnancy [Unknown]

NARRATIVE: CASE EVENT DATE: 20141215
